FAERS Safety Report 9742976 (Version 1)
Quarter: 2013Q4

REPORT INFORMATION
  Report Type: Report from Study
  Country: US (occurrence: US)
  Receive Date: 20131210
  Receipt Date: 20131210
  Transmission Date: 20140711
  Serious: Yes (Death)
  Sender: FDA-Public Use
  Company Number: US-ACTELION-A-US2013-91843

PATIENT
  Age: 91 Year
  Sex: Female

DRUGS (1)
  1. TRACLEER [Suspect]
     Indication: PULMONARY ARTERIAL HYPERTENSION
     Route: 048

REACTIONS (4)
  - Death [Fatal]
  - Pulmonary arterial hypertension [Unknown]
  - Malaise [Not Recovered/Not Resolved]
  - Unevaluable event [Not Recovered/Not Resolved]
